FAERS Safety Report 8169659-X (Version None)
Quarter: 2012Q1

REPORT INFORMATION
  Report Type: 
  Country: None (occurrence: None)
  Receive Date: 20120228
  Receipt Date: 20120226
  Transmission Date: 20120608
  Serious: No
  Sender: FDA-Public Use
  Company Number: US-PFIZER INC-2012050354

PATIENT
  Sex: Male
  Weight: 81 kg

DRUGS (2)
  1. DIAZEPAM [Concomitant]
     Indication: SLEEP DISORDER
     Dosage: UNK
  2. FLECTOR [Suspect]
     Dosage: UNK
     Dates: start: 20120225

REACTIONS (1)
  - VOMITING [None]
